FAERS Safety Report 21779288 (Version 1)
Quarter: 2022Q4

REPORT INFORMATION
  Report Type: Spontaneous
  Country: US (occurrence: US)
  Receive Date: 20221226
  Receipt Date: 20221226
  Transmission Date: 20230113
  Serious: Yes (Other)
  Sender: FDA-Public Use
  Company Number: US-TAKEDA-2022TUS098469

PATIENT
  Sex: Male

DRUGS (1)
  1. NINLARO [Suspect]
     Active Substance: IXAZOMIB CITRATE
     Indication: Product used for unknown indication
     Dosage: 3 MILLIGRAM
     Route: 048

REACTIONS (4)
  - Chronic kidney disease [Unknown]
  - Chronic obstructive pulmonary disease [Unknown]
  - Cardiac disorder [Unknown]
  - Ocular discomfort [Unknown]
